FAERS Safety Report 4887989-1 (Version None)
Quarter: 2006Q1

REPORT INFORMATION
  Report Type: 
  Country: None (occurrence: None)
  Receive Date: 20060119
  Receipt Date: 20060119
  Transmission Date: 20060701
  Serious: Yes (Death, Hospitalization)
  Sender: FDA-Public Use
  Company Number: None

PATIENT
  Sex: Female
  Weight: 58.3 kg

DRUGS (9)
  1. CYCLOPHOSPHAMIDE [Suspect]
     Indication: CHRONIC LYMPHOCYTIC LEUKAEMIA
     Dosage: SEE IMAGE
     Dates: start: 20050822, end: 20060109
  2. CYCLOPHOSPHAMIDE [Suspect]
     Indication: CHRONIC LYMPHOCYTIC LEUKAEMIA
     Dosage: SEE IMAGE
     Dates: start: 20060109
  3. PENTOSTATIN [Suspect]
     Dosage: SEE IMAGE
     Route: 042
     Dates: start: 20050822, end: 20060109
  4. PENTOSTATIN [Suspect]
     Dosage: SEE IMAGE
     Route: 042
     Dates: start: 20060109
  5. ACYCLOVIR [Concomitant]
  6. AZITHROMYCIN [Concomitant]
  7. BACTRIM DS [Concomitant]
  8. LASIX [Concomitant]
  9. PREDNISONE [Concomitant]

REACTIONS (10)
  - CARDIAC FAILURE CONGESTIVE [None]
  - ELECTROMECHANICAL DISSOCIATION [None]
  - HYPOTENSION [None]
  - LOSS OF CONSCIOUSNESS [None]
  - PNEUMONIA [None]
  - PNEUMONITIS [None]
  - PULMONARY OEDEMA [None]
  - PUPILLARY REFLEX IMPAIRED [None]
  - RESPIRATORY DISTRESS [None]
  - SINUS TACHYCARDIA [None]
